FAERS Safety Report 14818749 (Version 1)
Quarter: 2018Q2

REPORT INFORMATION
  Report Type: Spontaneous
  Country: US (occurrence: US)
  Receive Date: 20180427
  Receipt Date: 20180427
  Transmission Date: 20180711
  Serious: Yes (Other)
  Sender: FDA-Public Use
  Company Number: US-009507513-1804USA008312

PATIENT
  Age: 40 Year
  Sex: Female
  Weight: 51.8 kg

DRUGS (2)
  1. AVYCAZ [Concomitant]
     Active Substance: AVIBACTAM SODIUM\CEFTAZIDIME
     Indication: PNEUMONIA PSEUDOMONAL
     Dosage: UNK
  2. ZERBAXA [Suspect]
     Active Substance: CEFTOLOZANE SULFATE\TAZOBACTAM SODIUM
     Indication: PNEUMONIA PSEUDOMONAL
     Dosage: 1.5 G, Q8H
     Route: 042
     Dates: start: 20180410, end: 20180414

REACTIONS (3)
  - Drug ineffective [Unknown]
  - Pathogen resistance [Unknown]
  - Pneumonia pseudomonal [Unknown]

NARRATIVE: CASE EVENT DATE: 201804
